FAERS Safety Report 18228474 (Version 3)
Quarter: 2020Q3

REPORT INFORMATION
  Report Type: Report from Study
  Country: IE (occurrence: IE)
  Receive Date: 20200903
  Receipt Date: 20200929
  Transmission Date: 20201103
  Serious: Yes (Hospitalization, Other)
  Sender: FDA-Public Use
  Company Number: IE-SHIRE-IE202017007

PATIENT

DRUGS (17)
  1. HYQVIA [Suspect]
     Active Substance: HUMAN IMMUNOGLOBULIN G\HYALURONIDASE RECOMBINANT HUMAN
     Dosage: 10 GRAM, EVERY 4 WK
     Route: 058
     Dates: start: 20200921
  2. HYQVIA [Suspect]
     Active Substance: HUMAN IMMUNOGLOBULIN G\HYALURONIDASE RECOMBINANT HUMAN
     Indication: CHRONIC LYMPHOCYTIC LEUKAEMIA
     Dosage: 5 GRAM, UNKNOWN
     Route: 042
     Dates: start: 20200520
  3. HYQVIA [Suspect]
     Active Substance: HUMAN IMMUNOGLOBULIN G\HYALURONIDASE RECOMBINANT HUMAN
     Dosage: 5 GRAM, EVERY 4 WK
     Route: 058
     Dates: start: 20200921
  4. HYQVIA [Suspect]
     Active Substance: HUMAN IMMUNOGLOBULIN G\HYALURONIDASE RECOMBINANT HUMAN
     Indication: HYPOGAMMAGLOBULINAEMIA
     Dosage: 15 GRAM, EVERY 4 WK
     Route: 058
     Dates: start: 20200513
  5. HYQVIA [Suspect]
     Active Substance: HUMAN IMMUNOGLOBULIN G\HYALURONIDASE RECOMBINANT HUMAN
     Dosage: 10 GRAM, UNKNOWN
     Route: 042
     Dates: start: 20200708
  6. HYQVIA [Suspect]
     Active Substance: HUMAN IMMUNOGLOBULIN G\HYALURONIDASE RECOMBINANT HUMAN
     Dosage: 10 GRAM, EVERY 4 WK
     Route: 058
     Dates: start: 20200921
  7. ATORVASTATIN [Concomitant]
     Active Substance: ATORVASTATIN
     Indication: PRODUCT USED FOR UNKNOWN INDICATION
  8. HYQVIA [Suspect]
     Active Substance: HUMAN IMMUNOGLOBULIN G\HYALURONIDASE RECOMBINANT HUMAN
     Dosage: 5 GRAM, EVERY 4 WK
     Route: 058
     Dates: start: 20200921
  9. HYQVIA [Suspect]
     Active Substance: HUMAN IMMUNOGLOBULIN G\HYALURONIDASE RECOMBINANT HUMAN
     Dosage: 30 GRAM, EVERY 4 WK
     Route: 058
     Dates: start: 20200827
  10. HYQVIA [Suspect]
     Active Substance: HUMAN IMMUNOGLOBULIN G\HYALURONIDASE RECOMBINANT HUMAN
     Dosage: 30 GRAM, EVERY 4 WK
     Route: 058
     Dates: start: 20200827
  11. DENOSUMAB [Concomitant]
     Active Substance: DENOSUMAB
     Indication: PRODUCT USED FOR UNKNOWN INDICATION
  12. HYQVIA [Suspect]
     Active Substance: HUMAN IMMUNOGLOBULIN G\HYALURONIDASE RECOMBINANT HUMAN
     Dosage: 10 GRAM, UNKNOWN
     Route: 042
     Dates: start: 20200615
  13. HYQVIA [Suspect]
     Active Substance: HUMAN IMMUNOGLOBULIN G\HYALURONIDASE RECOMBINANT HUMAN
     Dosage: 5 GRAM, UNKNOWN
     Route: 042
     Dates: start: 20200708
  14. HYQVIA [Suspect]
     Active Substance: HUMAN IMMUNOGLOBULIN G\HYALURONIDASE RECOMBINANT HUMAN
     Dosage: 10 GRAM, EVERY 4 WK
     Route: 058
     Dates: start: 20200708
  15. DESUNIN [Concomitant]
     Active Substance: CHOLECALCIFEROL
     Indication: PRODUCT USED FOR UNKNOWN INDICATION
  16. HYQVIA [Suspect]
     Active Substance: HUMAN IMMUNOGLOBULIN G\HYALURONIDASE RECOMBINANT HUMAN
     Dosage: 5 GRAM, UNKNOWN
     Route: 042
     Dates: start: 20200615
  17. HYQVIA [Suspect]
     Active Substance: HUMAN IMMUNOGLOBULIN G\HYALURONIDASE RECOMBINANT HUMAN
     Dosage: 5 GRAM, EVERY 4 WK
     Route: 058
     Dates: start: 20200708

REACTIONS (15)
  - Abdominal infection [Recovering/Resolving]
  - Cough [Recovering/Resolving]
  - Infection [Recovering/Resolving]
  - Mouth ulceration [Not Recovered/Not Resolved]
  - Pyrexia [Not Recovered/Not Resolved]
  - Vaginal haemorrhage [Recovering/Resolving]
  - Infusion site swelling [Recovering/Resolving]
  - Asthenia [Not Recovered/Not Resolved]
  - Swelling face [Not Recovered/Not Resolved]
  - Procedural pain [Recovering/Resolving]
  - Abdominal pain [Recovering/Resolving]
  - Intestinal perforation [Not Recovered/Not Resolved]
  - Dyspnoea [Recovering/Resolving]
  - Infusion site erythema [Recovering/Resolving]
  - Lip swelling [Not Recovered/Not Resolved]

NARRATIVE: CASE EVENT DATE: 20200520
